FAERS Safety Report 9129428 (Version 1)
Quarter: 2013Q1

REPORT INFORMATION
  Report Type: Report from Study
  Country: US (occurrence: US)
  Receive Date: 20130125
  Receipt Date: 20130125
  Transmission Date: 20140127
  Serious: Yes (Death, Hospitalization)
  Sender: FDA-Public Use
  Company Number: US-ACTELION-A-NJ2012-70737

PATIENT
  Age: 73 Year
  Sex: Female

DRUGS (3)
  1. TRACLEER [Suspect]
     Indication: PULMONARY ARTERIAL HYPERTENSION
     Dosage: UNK
     Route: 048
     Dates: end: 20130111
  2. ADCIRCA [Concomitant]
  3. COUMADIN [Concomitant]

REACTIONS (5)
  - Death [Fatal]
  - Pneumonia [Unknown]
  - Cardiac failure congestive [Unknown]
  - Influenza [Unknown]
  - Dyspnoea exertional [Unknown]
